FAERS Safety Report 7199095-4 (Version None)
Quarter: 2010Q4

REPORT INFORMATION
  Report Type: 
  Country: None (occurrence: None)
  Receive Date: 20101126
  Receipt Date: 20100712
  Transmission Date: 20110411
  Serious: Yes (Hospitalization)
  Sender: FDA-Public Use
  Company Number: CIP10001625

PATIENT
  Age: 57 Year
  Sex: Female

DRUGS (6)
  1. ACTONEL [Suspect]
     Dosage: 150 MG, TOOK ONLY ONE DOSE, ORAL
     Route: 048
     Dates: start: 20100704, end: 20100704
  2. SULAR [Concomitant]
  3. PAMELOR [Concomitant]
  4. ZIAC /01166101/ (BISOPROLOL FUMARATE, HYDROCHLOROTHIAZIDE) [Concomitant]
  5. CALCIUM (CALCIUM) [Concomitant]
  6. ERGOCALCIFEROL [Concomitant]

REACTIONS (12)
  - DECREASED APPETITE [None]
  - DEHYDRATION [None]
  - DIARRHOEA [None]
  - FEELING ABNORMAL [None]
  - HEADACHE [None]
  - HYPERSENSITIVITY [None]
  - INFLUENZA LIKE ILLNESS [None]
  - NAUSEA [None]
  - PAIN [None]
  - PYREXIA [None]
  - SWOLLEN TONGUE [None]
  - VOMITING [None]
